FAERS Safety Report 5303080-4 (Version None)
Quarter: 2007Q1

REPORT INFORMATION
  Report Type: 
  Country: None (occurrence: None)
  Receive Date: 20070201
  Receipt Date: 20061130
  Transmission Date: 20070707
  Serious: No
  Sender: FDA-Public Use
  Company Number: 2006PV026093

PATIENT
  Age: 36 Year
  Sex: Female

DRUGS (3)
  1. BYETTA [Suspect]
     Indication: DIABETES MELLITUS NON-INSULIN-DEPENDENT
     Dosage: SEE IMAGE
     Route: 058
     Dates: start: 20061019, end: 20061119
  2. BYETTA [Suspect]
     Indication: DIABETES MELLITUS NON-INSULIN-DEPENDENT
     Dosage: SEE IMAGE
     Route: 058
     Dates: start: 20061120
  3. GLUCOPHAGE [Concomitant]

REACTIONS (5)
  - BLOOD GLUCOSE INCREASED [None]
  - INJECTION SITE URTICARIA [None]
  - MEDICATION ERROR [None]
  - NASOPHARYNGITIS [None]
  - WEIGHT DECREASED [None]
